FAERS Safety Report 15979993 (Version 1)
Quarter: 2019Q1

REPORT INFORMATION
  Report Type: Spontaneous
  Country: GB (occurrence: GB)
  Receive Date: 20190219
  Receipt Date: 20190219
  Transmission Date: 20190418
  Serious: Yes (Hospitalization)
  Sender: FDA-Public Use
  Company Number: GB-ACCORD-107176

PATIENT
  Age: 42 Year
  Sex: Female
  Weight: 48 kg

DRUGS (4)
  1. MYCOPHENOLIC ACID. [Suspect]
     Active Substance: MYCOPHENOLIC ACID
     Indication: AUTOIMMUNE UVEITIS
     Route: 048
     Dates: start: 20180608
  2. OMEPRAZOLE. [Concomitant]
     Active Substance: OMEPRAZOLE
  3. AMITRIPTYLINE [Concomitant]
     Active Substance: AMITRIPTYLINE
  4. CYCLOPHOSPHAMIDE/CYCLOPHOSPHAMIDE MONOHYDRATE [Concomitant]
     Indication: CUTANEOUS LUPUS ERYTHEMATOSUS
     Dosage: SEVERAL CYCLES COMPLETED
     Route: 042
     Dates: end: 201804

REACTIONS (7)
  - Headache [Recovered/Resolved]
  - Muscle spasms [Recovered/Resolved]
  - Hyperpyrexia [Recovered/Resolved]
  - Paraesthesia [Recovered/Resolved]
  - Sensitivity of teeth [Unknown]
  - Formication [Recovered/Resolved]
  - Off label use [Unknown]

NARRATIVE: CASE EVENT DATE: 20180625
